FAERS Safety Report 8884727 (Version 1)
Quarter: 2012Q4

REPORT INFORMATION
  Report Type: 
  Country: DE (occurrence: DE)
  Receive Date: 20121102
  Receipt Date: 20121102
  Transmission Date: 20130627
  Serious: Yes (Death, Congenital Anomaly)
  Sender: FDA-Public Use
  Company Number: DE-ABBOTT-12P-062-1003735-00

PATIENT

DRUGS (1)
  1. VALPROATE SODIUM [Suspect]
     Indication: MATERNAL EXPOSURE TIMING UNSPECIFIED
     Route: 064

REACTIONS (7)
  - Abortion induced [Fatal]
  - Foetal malformation [Unknown]
  - Foetal exposure during pregnancy [Unknown]
  - Spina bifida [Unknown]
  - Cleft lip and palate [Unknown]
  - Talipes [Unknown]
  - Congenital cardiovascular anomaly [Unknown]
